FAERS Safety Report 23176742 (Version 1)
Quarter: 2023Q4

REPORT INFORMATION
  Report Type: Spontaneous
  Country: US (occurrence: US)
  Receive Date: 20231113
  Receipt Date: 20231113
  Transmission Date: 20240110
  Serious: No
  Sender: FDA-Public Use
  Company Number: US-PERRIGO-23US002103

PATIENT
  Age: 69 Year
  Sex: Female
  Weight: 49.887 kg

DRUGS (23)
  1. POLYETHYLENE GLYCOL 3350 [Suspect]
     Active Substance: POLYETHYLENE GLYCOL 3350
     Indication: Accidental exposure to product
     Dosage: UNKNOWN, UNKNOWN
     Route: 048
  2. CASEIN\DIETARY SUPPLEMENT\THEANINE [Concomitant]
     Active Substance: CASEIN\DIETARY SUPPLEMENT\THEANINE
     Indication: Insomnia
     Dosage: UNK
     Route: 065
     Dates: start: 2022
  3. PROLIA [Concomitant]
     Active Substance: DENOSUMAB
     Indication: Osteoporosis
     Dosage: UNK
     Route: 058
     Dates: start: 2019
  4. COLLAGEN [Concomitant]
     Active Substance: COLLAGEN
     Indication: Supplementation therapy
     Dosage: UNK
     Route: 065
  5. CINNAMON [CINNAMOMUM VERUM] [Concomitant]
     Indication: Supplementation therapy
     Dosage: UNK
     Route: 065
  6. CRANBERRY [Concomitant]
     Active Substance: CRANBERRY
     Indication: Supplementation therapy
     Dosage: UNK
     Route: 065
  7. FLAXSEED [Concomitant]
     Active Substance: FLAX SEED
     Indication: Supplementation therapy
     Dosage: UNK
     Route: 065
  8. COENZYME Q10 [Concomitant]
     Active Substance: DIETARY SUPPLEMENT\UBIDECARENONE
     Indication: Supplementation therapy
     Dosage: UNK
     Route: 065
  9. VITAMIN C PALMITATE [Concomitant]
     Indication: Supplementation therapy
     Dosage: UNK
     Route: 065
  10. GLUCOSAMINE [Concomitant]
     Active Substance: GLUCOSAMINE
     Indication: Supplementation therapy
     Dosage: UNK
     Route: 065
  11. VITAMIN D3 [Concomitant]
     Active Substance: CHOLECALCIFEROL
     Indication: Supplementation therapy
     Dosage: UNK
     Route: 065
  12. HERBALS\TURMERIC [Concomitant]
     Active Substance: HERBALS\TURMERIC
     Indication: Supplementation therapy
     Dosage: UNK
     Route: 065
  13. .ALPHA.-TOCOPHEROL [Concomitant]
     Active Substance: .ALPHA.-TOCOPHEROL
     Indication: Supplementation therapy
     Dosage: UNK
     Route: 065
  14. VITAMIN B12 [Concomitant]
     Active Substance: CYANOCOBALAMIN
     Indication: Supplementation therapy
     Dosage: UNK
     Route: 065
  15. VITAMINS [Concomitant]
     Active Substance: VITAMINS
     Indication: Supplementation therapy
     Dosage: UNK
     Route: 065
  16. OREGANO LEAF OIL [Concomitant]
     Active Substance: OREGANO LEAF OIL
     Indication: Supplementation therapy
     Dosage: UNK
     Route: 065
  17. FISH OIL [Concomitant]
     Active Substance: FISH OIL
     Indication: Supplementation therapy
     Dosage: UNK
     Route: 065
  18. HERBALS [Concomitant]
     Active Substance: HERBALS
     Indication: Supplementation therapy
     Dosage: UNK
     Route: 065
  19. CYANOCOBALAMIN\DEXPANTHENOL\NIACINAMIDE\PYRIDOXINE HYDROCHLORIDE\RIBOF [Concomitant]
     Active Substance: CYANOCOBALAMIN\DEXPANTHENOL\NIACINAMIDE\PYRIDOXINE HYDROCHLORIDE\RIBOFLAVIN 5^-PHOSPHATE SODIUM\THIA
     Indication: Supplementation therapy
     Dosage: UNK
     Route: 065
  20. ACIDOPHILUS [Concomitant]
     Active Substance: LACTOBACILLUS ACIDOPHILUS
     Indication: Supplementation therapy
     Dosage: UNK
     Route: 065
  21. MAGNESIUM [Concomitant]
     Active Substance: MAGNESIUM
     Indication: Supplementation therapy
     Dosage: UNK
     Route: 065
  22. CALCIUM [Concomitant]
     Active Substance: CALCIUM
     Indication: Supplementation therapy
     Dosage: UNK
     Route: 065
  23. ZINC [Concomitant]
     Active Substance: PYRITHIONE ZINC\ZINC\ZINC CHLORIDE
     Indication: Supplementation therapy
     Dosage: UNK
     Route: 065

REACTIONS (6)
  - Haematochezia [Unknown]
  - Asthenia [Not Recovered/Not Resolved]
  - Paraesthesia [Not Recovered/Not Resolved]
  - Nausea [Recovering/Resolving]
  - Diarrhoea [Recovered/Resolved]
  - Accidental exposure to product [Unknown]

NARRATIVE: CASE EVENT DATE: 20221220
